FAERS Safety Report 8059498-2 (Version None)
Quarter: 2011Q4

REPORT INFORMATION
  Report Type: 
  Country: None (occurrence: None)
  Receive Date: 20111220
  Receipt Date: 20110712
  Transmission Date: 20120403
  Serious: Yes (Hospitalization, Other)
  Sender: FDA-Public Use
  Company Number: PHHY2011US00555

PATIENT
  Age: 55 Year
  Sex: Female

DRUGS (1)
  1. MYFORTIC [Suspect]
     Indication: RENAL TRANSPLANT
     Dosage: 720 MG,  BID, ORAL
     Route: 048
     Dates: start: 20100702, end: 20101001

REACTIONS (2)
  - BK VIRUS INFECTION [None]
  - KIDNEY TRANSPLANT REJECTION [None]
